FAERS Safety Report 19220282 (Version 3)
Quarter: 2021Q4

REPORT INFORMATION
  Report Type: Spontaneous
  Country: LB (occurrence: LB)
  Receive Date: 20210505
  Receipt Date: 20211109
  Transmission Date: 20220303
  Serious: Yes (Hospitalization)
  Sender: FDA-Public Use
  Company Number: LB-PFIZER INC-2021448024

PATIENT
  Age: 39 Year
  Sex: Female

DRUGS (3)
  1. INLYTA [Suspect]
     Active Substance: AXITINIB
     Indication: Renal cell carcinoma
     Dosage: 5 MG, 2X/DAY
     Route: 048
     Dates: start: 202102, end: 202106
  2. INLYTA [Suspect]
     Active Substance: AXITINIB
     Dosage: 1 MG 5 TIMES/DAY
     Route: 048
     Dates: start: 202107, end: 202108
  3. INLYTA [Suspect]
     Active Substance: AXITINIB
     Dosage: 5 MG, 2X/DAY
     Route: 048
     Dates: start: 202108

REACTIONS (2)
  - Infective myositis [Recovering/Resolving]
  - Off label use [Unknown]

NARRATIVE: CASE EVENT DATE: 20210701
